FAERS Safety Report 9779802 (Version 2)
Quarter: 2014Q1

REPORT INFORMATION
  Report Type: Spontaneous
  Country: JP (occurrence: JP)
  Receive Date: 20131223
  Receipt Date: 20140130
  Transmission Date: 20141002
  Serious: No
  Sender: FDA-Public Use
  Company Number: JP-VIIV HEALTHCARE LIMITED-B0954623A

PATIENT
  Age: 44 Year
  Sex: Male

DRUGS (3)
  1. EPZICOM [Suspect]
     Indication: HIV INFECTION
     Dosage: 1IUAX PER DAY
     Route: 048
  2. PREZISTA NAIVE [Suspect]
     Indication: HIV INFECTION
     Route: 048
  3. NORVIR [Suspect]
     Indication: HIV INFECTION
     Dosage: 100MG PER DAY
     Route: 048

REACTIONS (8)
  - Skin disorder [Recovered/Resolved]
  - Pyrexia [Unknown]
  - Generalised erythema [Unknown]
  - Ocular hyperaemia [Unknown]
  - Tongue disorder [Unknown]
  - Dysuria [Unknown]
  - Mucous membrane disorder [Unknown]
  - Rash [Unknown]
